FAERS Safety Report 12707679 (Version 1)
Quarter: 2016Q3

REPORT INFORMATION
  Report Type: Spontaneous
  Country: US (occurrence: US)
  Receive Date: 20160901
  Receipt Date: 20160901
  Transmission Date: 20161109
  Serious: No
  Sender: FDA-Public Use
  Company Number: US-PFIZER INC-2016396737

PATIENT

DRUGS (16)
  1. LEVAQUIN [Suspect]
     Active Substance: LEVOFLOXACIN
     Dosage: UNK
  2. NIASPAN ER [Suspect]
     Active Substance: NIACIN
     Dosage: UNK
  3. VASOTEC [Suspect]
     Active Substance: ENALAPRIL MALEATE
     Dosage: UNK
  4. ERYTHROMYCIN. [Suspect]
     Active Substance: ERYTHROMYCIN
     Dosage: UNK
  5. VICODIN [Suspect]
     Active Substance: ACETAMINOPHEN\HYDROCODONE BITARTRATE
     Dosage: UNK
  6. CECLOR [Suspect]
     Active Substance: CEFACLOR
     Dosage: UNK
  7. SUDAFED 12 HOUR PRESSURE AND PAIN [Suspect]
     Active Substance: NAPROXEN SODIUM\PSEUDOEPHEDRINE HYDROCHLORIDE
     Dosage: UNK
  8. SUPRAX [Suspect]
     Active Substance: CEFIXIME
     Dosage: UNK
  9. CODEINE [Suspect]
     Active Substance: CODEINE
     Dosage: UNK
  10. NITROFURANTOIN. [Suspect]
     Active Substance: NITROFURANTOIN
     Dosage: UNK
  11. MORPHINE SULFATE. [Suspect]
     Active Substance: MORPHINE SULFATE
     Dosage: UNK
  12. VYTORIN [Suspect]
     Active Substance: EZETIMIBE\SIMVASTATIN
     Dosage: UNK
  13. GEMFIBROZIL. [Suspect]
     Active Substance: GEMFIBROZIL
     Dosage: UNK
  14. OXYCODONE [Suspect]
     Active Substance: OXYCODONE
     Dosage: UNK
  15. PRAMOXINE [Suspect]
     Active Substance: PRAMOXINE
     Dosage: UNK
  16. ZONEGRAN [Suspect]
     Active Substance: ZONISAMIDE
     Dosage: UNK

REACTIONS (1)
  - Drug hypersensitivity [Unknown]
